FAERS Safety Report 8109656-3 (Version None)
Quarter: 2012Q1

REPORT INFORMATION
  Report Type: 
  Country: None (occurrence: None)
  Receive Date: 20120202
  Receipt Date: 20120120
  Transmission Date: 20120608
  Serious: Yes (Other)
  Sender: FDA-Public Use
  Company Number: GB-MYLANLABS-2008S1001751

PATIENT
  Age: 67 Year
  Sex: Female

DRUGS (7)
  1. SIMVASTATIN [Interacting]
     Indication: MYOCARDIAL INFARCTION
  2. PLAVIX [Suspect]
     Indication: MYOCARDIAL INFARCTION
  3. PREGABALIN [Suspect]
     Indication: TRIGEMINAL NEURALGIA
     Dates: start: 20060101
  4. BISOPROLOL FUMARATE [Suspect]
     Indication: MYOCARDIAL INFARCTION
  5. CLOPIDOGREL BISULFATE [Suspect]
     Indication: MYOCARDIAL INFARCTION
  6. ALTACE [Suspect]
     Indication: MYOCARDIAL INFARCTION
  7. ASPIRIN [Suspect]
     Indication: MYOCARDIAL INFARCTION

REACTIONS (3)
  - TRIGEMINAL NEURALGIA [None]
  - DRUG INTERACTION [None]
  - DRUG INEFFECTIVE [None]
